FAERS Safety Report 10023372 (Version 1)
Quarter: 2014Q1

REPORT INFORMATION
  Report Type: Report from Study
  Country: FR (occurrence: FR)
  Receive Date: 20140320
  Receipt Date: 20140320
  Transmission Date: 20141002
  Serious: Yes (Hospitalization)
  Sender: FDA-Public Use
  Company Number: FR-ROCHE-1363532

PATIENT
  Sex: Male
  Weight: 99 kg

DRUGS (7)
  1. RITUXIMAB [Suspect]
     Indication: B-CELL LYMPHOMA
     Route: 042
     Dates: start: 20120614
  2. RITUXIMAB [Suspect]
     Dosage: CYCLE 2
     Route: 042
     Dates: start: 20120621
  3. RITUXIMAB [Suspect]
     Dosage: CYCLE 3
     Route: 042
     Dates: start: 20120628
  4. FLUDARABINE [Suspect]
     Indication: B-CELL LYMPHOMA
     Route: 065
     Dates: start: 20120615
  5. FLUDARABINE [Suspect]
     Dosage: CYCLE 2
     Route: 065
     Dates: start: 20120617
  6. ENDOXAN [Suspect]
     Indication: B-CELL LYMPHOMA
     Route: 065
     Dates: start: 20120615
  7. ENDOXAN [Suspect]
     Dosage: CYCLE 2
     Route: 065
     Dates: start: 20120617

REACTIONS (6)
  - Acute graft versus host disease in intestine [Recovered/Resolved]
  - Escherichia urinary tract infection [Recovered/Resolved]
  - Renal failure acute [Recovered/Resolved]
  - Graft versus host disease [Recovered/Resolved]
  - Acute graft versus host disease in skin [Recovered/Resolved]
  - Dehydration [Recovered/Resolved]
